FAERS Safety Report 21473057 (Version 6)
Quarter: 2023Q1

REPORT INFORMATION
  Report Type: Spontaneous
  Country: IN (occurrence: IN)
  Receive Date: 20221018
  Receipt Date: 20230314
  Transmission Date: 20230418
  Serious: Yes (Other)
  Sender: FDA-Public Use
  Company Number: IN-PFIZER INC-PV202200047322

PATIENT
  Age: 68 Year
  Sex: Female
  Weight: 81.3 kg

DRUGS (2)
  1. PALBOCICLIB [Suspect]
     Active Substance: PALBOCICLIB
     Indication: Breast cancer female
     Dosage: 125 MG, CYCLIC (21 DAYS 7 DAYS OFF), OD
     Route: 048
     Dates: start: 20210914
  2. LETROZOLE [Concomitant]
     Active Substance: LETROZOLE
     Dosage: 2.5 MG, 1X/DAY

REACTIONS (23)
  - Carcinoembryonic antigen increased [Unknown]
  - Platelet count abnormal [Unknown]
  - Herpes virus infection [Recovering/Resolving]
  - Body mass index increased [Unknown]
  - Body surface area increased [Unknown]
  - Overweight [Unknown]
  - Pain [Unknown]
  - Vomiting [Unknown]
  - Fall [Unknown]
  - Contusion [Unknown]
  - Haemoglobin decreased [Unknown]
  - White blood cell count decreased [Unknown]
  - Neutrophil count decreased [Unknown]
  - Tumour marker increased [Unknown]
  - Blood pressure increased [Unknown]
  - Blood urea increased [Unknown]
  - Mean cell haemoglobin concentration decreased [Unknown]
  - Asthenia [Unknown]
  - Carbohydrate antigen 15-3 increased [Unknown]
  - Red blood cell count decreased [Unknown]
  - Haematocrit decreased [Unknown]
  - Red cell distribution width increased [Unknown]
  - Muscular weakness [Unknown]

NARRATIVE: CASE EVENT DATE: 20220401
